FAERS Safety Report 8599107-7 (Version None)
Quarter: 2012Q3

REPORT INFORMATION
  Report Type: 
  Country: None (occurrence: None)
  Receive Date: 20120816
  Receipt Date: 20120813
  Transmission Date: 20120928
  Serious: Yes (Life-Threatening)
  Sender: FDA-Public Use
  Company Number: US-BAYER-2012-082387

PATIENT
  Age: 62 Year
  Sex: Female
  Weight: 76 kg

DRUGS (5)
  1. ASPIRIN [Suspect]
     Indication: ARTHRITIS
     Dosage: 2 DF
     Route: 048
  2. HORMONES NOS [Concomitant]
  3. AMITRIPTYLINE HCL [Concomitant]
  4. PROTONIX [Concomitant]
  5. MICARDIS [Concomitant]

REACTIONS (2)
  - CHOKING [None]
  - OROPHARYNGEAL PAIN [None]
